FAERS Safety Report 9167015 (Version 1)
Quarter: 2013Q1

REPORT INFORMATION
  Report Type: Spontaneous
  Country: FR (occurrence: FR)
  Receive Date: 20130318
  Receipt Date: 20130322
  Transmission Date: 20140127
  Serious: Yes (Death, Other)
  Sender: FDA-Public Use
  Company Number: FR-ACCORD-016861

PATIENT
  Age: 65 Year
  Sex: Male

DRUGS (15)
  1. DOCETAXEL [Suspect]
     Indication: CHEMOTHERAPY
     Route: 042
     Dates: start: 20130128, end: 20130128
  2. TEMERIT [Concomitant]
     Dates: start: 201209
  3. CRESTOR [Concomitant]
     Dates: start: 201209
  4. INIPOMP [Concomitant]
     Dates: start: 201209
  5. RANITIDINE [Concomitant]
     Indication: PREMEDICATION
  6. TRANXENE [Concomitant]
     Indication: PREMEDICATION
     Dates: start: 201209
  7. ZOPHREN [Concomitant]
     Indication: PREMEDICATION
     Dates: start: 20130129
  8. CISPLATIN [Suspect]
     Indication: CHEMOTHERAPY
     Route: 042
     Dates: start: 20130128, end: 20130128
  9. GRANISETRON [Concomitant]
     Indication: PREMEDICATION
  10. POLARAMINE [Concomitant]
     Indication: PREMEDICATION
  11. DOMPERIDONE [Concomitant]
     Indication: PREMEDICATION
     Dates: start: 20130129
  12. METHYLPREDNISOLONE [Concomitant]
     Indication: PREMEDICATION
  13. LARGACTIL [Concomitant]
     Indication: PREMEDICATION
  14. PLAVIX [Concomitant]
     Dates: start: 201209
  15. RAMIPRIL [Concomitant]
     Dates: start: 201209

REACTIONS (7)
  - Multi-organ failure [Fatal]
  - Aplasia [Not Recovered/Not Resolved]
  - Nausea [Unknown]
  - Vomiting [Unknown]
  - Diarrhoea [Unknown]
  - Pyrexia [Unknown]
  - Cardio-respiratory arrest [Unknown]
